FAERS Safety Report 23257313 (Version 1)
Quarter: 2023Q4

REPORT INFORMATION
  Report Type: Spontaneous
  Country: BR (occurrence: BR)
  Receive Date: 20231204
  Receipt Date: 20231204
  Transmission Date: 20240110
  Serious: Yes (Other)
  Sender: FDA-Public Use
  Company Number: BR-MACLEODS PHARMACEUTICALS US LTD-MAC2023044577

PATIENT

DRUGS (2)
  1. ESCITALOPRAM [Interacting]
     Active Substance: ESCITALOPRAM OXALATE
     Indication: Mantle cell lymphoma recurrent
     Dosage: UNK
     Route: 065
  2. ACALABRUTINIB [Interacting]
     Active Substance: ACALABRUTINIB
     Indication: Mantle cell lymphoma recurrent
     Dosage: UNK
     Route: 065

REACTIONS (4)
  - Dermatoporosis [Unknown]
  - Skin atrophy [Unknown]
  - Ischaemia [Unknown]
  - Drug interaction [Unknown]
